FAERS Safety Report 17842254 (Version 1)
Quarter: 2020Q2

REPORT INFORMATION
  Report Type: Report from Study
  Country: GB (occurrence: GB)
  Receive Date: 20200529
  Receipt Date: 20200529
  Transmission Date: 20200714
  Serious: Yes (Other)
  Sender: FDA-Public Use
  Company Number: GB-JNJFOC-20200528041

PATIENT

DRUGS (4)
  1. ADALIMUMAB [Suspect]
     Active Substance: ADALIMUMAB
     Indication: PSORIASIS
     Route: 065
  2. REMICADE [Suspect]
     Active Substance: INFLIXIMAB
     Indication: PSORIASIS
     Route: 042
  3. ETANERCEPT [Suspect]
     Active Substance: ETANERCEPT
     Indication: PSORIASIS
     Route: 065
  4. STELARA [Suspect]
     Active Substance: USTEKINUMAB
     Indication: PSORIASIS
     Route: 058

REACTIONS (18)
  - Pneumonia [Unknown]
  - Infection [Unknown]
  - Urinary tract infection [Unknown]
  - Viraemia [Unknown]
  - Upper respiratory tract infection [Unknown]
  - Oral infection [Unknown]
  - Lower respiratory tract infection [Unknown]
  - Gastrointestinal infection [Unknown]
  - Bacteraemia [Unknown]
  - Soft tissue infection [Unknown]
  - Arthritis infective [Unknown]
  - Sepsis [Unknown]
  - Osteomyelitis [Unknown]
  - Fungaemia [Unknown]
  - Splenic infection [Unknown]
  - Ear infection [Unknown]
  - Eye infection [Unknown]
  - Hepatobiliary infection [Unknown]
